FAERS Safety Report 7011820-1 (Version None)
Quarter: 2010Q3

REPORT INFORMATION
  Report Type: 
  Country: None (occurrence: None)
  Receive Date: 20100923
  Receipt Date: 20090806
  Transmission Date: 20110219
  Serious: No
  Sender: FDA-Public Use
  Company Number: US-WYE-H10071609

PATIENT
  Sex: Female
  Weight: 65.83 kg

DRUGS (9)
  1. PREMARIN [Suspect]
     Indication: VULVOVAGINAL DRYNESS
     Dosage: APPLIES UNMEASURED AMOUNT ON HER FINGER AND THEN APPLIED TO LABIA
     Route: 061
  2. LOTREL [Concomitant]
  3. LOPRESSOR [Concomitant]
  4. VITAMIN D3 [Concomitant]
  5. ELAVIL [Concomitant]
  6. XANAX [Concomitant]
  7. VITAMIN B-12 [Concomitant]
  8. HYDROCHLOROTHIAZIDE [Concomitant]
  9. COMPAZINE [Concomitant]

REACTIONS (5)
  - ABDOMINAL PAIN [None]
  - ALOPECIA [None]
  - HEADACHE [None]
  - INCORRECT ROUTE OF DRUG ADMINISTRATION [None]
  - VULVOVAGINAL PRURITUS [None]
